FAERS Safety Report 10437253 (Version 1)
Quarter: 2014Q3

REPORT INFORMATION
  Report Type: Spontaneous
  Country: US (occurrence: US)
  Receive Date: 20140908
  Receipt Date: 20140908
  Transmission Date: 20150326
  Serious: No
  Sender: FDA-Public Use
  Company Number: US-BRISTOL-MYERS SQUIBB COMPANY-19609940

PATIENT
  Age: 6 Year
  Sex: Male
  Weight: 13.15 kg

DRUGS (2)
  1. ABILIFY [Suspect]
     Active Substance: ARIPIPRAZOLE
     Indication: DEPRESSION
     Dosage: 4 MG IN THE MORNING AND 2 MG IN THE EVENING
  2. ABILIFY [Suspect]
     Active Substance: ARIPIPRAZOLE
     Indication: ATTENTION DEFICIT/HYPERACTIVITY DISORDER
     Dosage: 4 MG IN THE MORNING AND 2 MG IN THE EVENING

REACTIONS (2)
  - Swelling face [Unknown]
  - Tremor [Unknown]
